FAERS Safety Report 16473741 (Version 1)
Quarter: 2019Q2

REPORT INFORMATION
  Report Type: Other
  Country: NO (occurrence: NO)
  Receive Date: 20190625
  Receipt Date: 20190625
  Transmission Date: 20190711
  Serious: Yes (Other)
  Sender: FDA-Public Use
  Company Number: NO-DENTSPLY-2019SCDP000365

PATIENT
  Age: 40 Year
  Sex: Female

DRUGS (3)
  1. TETRACAINE HYDROCHLORIDE. [Suspect]
     Active Substance: TETRACAINE HYDROCHLORIDE
     Indication: LOCAL ANAESTHESIA
     Dosage: UNK
     Route: 065
  2. EPINEPHRINE BITARTRATE [Suspect]
     Active Substance: EPINEPHRINE BITARTRATE
     Indication: LOCAL ANAESTHESIA
     Dosage: UNK
     Route: 065
  3. LIDOCAINE HYDROCHLORIDE AND EPINEPHRINE BITARTRATE [Suspect]
     Active Substance: EPINEPHRINE BITARTRATE\LIDOCAINE HYDROCHLORIDE
     Indication: LOCAL ANAESTHESIA
     Dosage: 1 %
     Route: 065

REACTIONS (1)
  - Osteomyelitis [Unknown]
